FAERS Safety Report 21774514 (Version 4)
Quarter: 2023Q1

REPORT INFORMATION
  Report Type: Report from Study
  Country: US (occurrence: US)
  Receive Date: 20221224
  Receipt Date: 20230302
  Transmission Date: 20230418
  Serious: No
  Sender: FDA-Public Use
  Company Number: US-002147023-NVSC2022US295097

PATIENT
  Age: 43 Year
  Sex: Female

DRUGS (1)
  1. KESIMPTA [Suspect]
     Active Substance: OFATUMUMAB
     Indication: Multiple sclerosis
     Dosage: 20 MG, QMO
     Route: 058
     Dates: start: 20221014

REACTIONS (8)
  - COVID-19 [Recovering/Resolving]
  - Respiratory disorder [Recovering/Resolving]
  - Productive cough [Recovering/Resolving]
  - Nasal congestion [Unknown]
  - Pyrexia [Recovering/Resolving]
  - Bronchitis [Recovering/Resolving]
  - Wheezing [Recovering/Resolving]
  - Upper respiratory tract infection [Recovering/Resolving]

NARRATIVE: CASE EVENT DATE: 20221218
